FAERS Safety Report 10269174 (Version 1)
Quarter: 2014Q2

REPORT INFORMATION
  Report Type: Spontaneous
  Country: US (occurrence: US)
  Receive Date: 20140630
  Receipt Date: 20140630
  Transmission Date: 20141212
  Serious: No
  Sender: FDA-Public Use
  Company Number: US-SA-2014SA044228

PATIENT
  Sex: 0

DRUGS (1)
  1. HECTOROL [Suspect]
     Indication: PRODUCT USED FOR UNKNOWN INDICATION
     Dosage: ROUTE: IV PUSH
     Route: 040

REACTIONS (5)
  - Hypersensitivity [Unknown]
  - Flushing [Unknown]
  - Hot flush [Unknown]
  - Abdominal pain upper [Unknown]
  - Headache [Unknown]
